FAERS Safety Report 4641174-7 (Version None)
Quarter: 2005Q1

REPORT INFORMATION
  Report Type: 
  Country: None (occurrence: None)
  Receive Date: 20050322
  Receipt Date: 20040621
  Transmission Date: 20050727
  Serious: Yes (Hospitalization, Other)
  Sender: FDA-Public Use
  Company Number: HQWYE581222JUN04

PATIENT
  Age: 66 Year
  Sex: Male
  Weight: 74.46 kg

DRUGS (2)
  1. PROTONIX [Suspect]
     Indication: REFLUX OESOPHAGITIS
     Dosage: 40 MG 1X PER 1 DAY, ORAL
     Route: 048
     Dates: start: 20040421, end: 20040611
  2. PROTONIX [Suspect]
     Indication: REFLUX OESOPHAGITIS
     Dosage: 40 MG 1X PER 1 DAY, ORAL
     Route: 048
     Dates: start: 20040613, end: 20040617

REACTIONS (6)
  - BACK PAIN [None]
  - CHEST PAIN [None]
  - DIZZINESS [None]
  - DYSPNOEA [None]
  - FATIGUE [None]
  - NAUSEA [None]
